FAERS Safety Report 8992433 (Version 4)
Quarter: 2015Q4

REPORT INFORMATION
  Report Type: Report from Study
  Country: BR (occurrence: BR)
  Receive Date: 20121231
  Receipt Date: 20151111
  Transmission Date: 20160305
  Serious: Yes (Other)
  Sender: FDA-Public Use
  Company Number: BR-BIOGENIDEC-2012BI063496

PATIENT
  Age: 68 Year
  Sex: Female
  Weight: 94 kg

DRUGS (11)
  1. AVONEX [Suspect]
     Active Substance: INTERFERON BETA-1A
     Indication: MULTIPLE SCLEROSIS
     Route: 030
     Dates: start: 200404, end: 201507
  2. OMEPRAZOLE. [Concomitant]
     Active Substance: OMEPRAZOLE
  3. ALDACTONE [Concomitant]
     Active Substance: SPIRONOLACTONE
  4. STILNOX [Concomitant]
     Active Substance: ZOLPIDEM TARTRATE
  5. TAMARINE [Concomitant]
  6. AVONEX [Suspect]
     Active Substance: INTERFERON BETA-1A
     Indication: MULTIPLE SCLEROSIS
     Route: 030
     Dates: start: 2004
  7. MACRODANTIN [Concomitant]
     Active Substance: NITROFURANTOIN
  8. LASIX [Concomitant]
     Active Substance: FUROSEMIDE
  9. LOSARTAN. [Concomitant]
     Active Substance: LOSARTAN
  10. MONOCORDIL [Concomitant]
     Active Substance: ISOSORBIDE MONONITRATE
  11. FLUCONAZOLE. [Concomitant]
     Active Substance: FLUCONAZOLE

REACTIONS (6)
  - Renal aneurysm [Not Recovered/Not Resolved]
  - Influenza like illness [Recovered/Resolved]
  - Diarrhoea [Not Recovered/Not Resolved]
  - Vertigo [Not Recovered/Not Resolved]
  - General symptom [Unknown]
  - Nausea [Recovered/Resolved]

NARRATIVE: CASE EVENT DATE: 2004
